FAERS Safety Report 14252696 (Version 1)
Quarter: 2017Q4

REPORT INFORMATION
  Report Type: Other
  Country: DE (occurrence: DE)
  Receive Date: 20171206
  Receipt Date: 20171206
  Transmission Date: 20180321
  Serious: No
  Sender: FDA-Public Use
  Company Number: DE-LUPIN PHARMACEUTICAL INC.-E2B_00007016

PATIENT
  Age: 48 Year
  Sex: Female
  Weight: 78 kg

DRUGS (11)
  1. PRAVASTATIN. [Suspect]
     Active Substance: PRAVASTATIN
     Indication: ACUTE MYOCARDIAL INFARCTION
     Dosage: 40 MG,UNK,UNKNOWN
     Route: 065
     Dates: start: 2013, end: 2013
  2. EZETROL [Suspect]
     Active Substance: EZETIMIBE
     Dosage: UNK UNK,UNK,UNKNOWN
     Route: 065
  3. PRAVASTATIN. [Suspect]
     Active Substance: PRAVASTATIN
     Dosage: UNK UNK,UNK,UNKNOWN
     Route: 065
  4. ATORVASTATIN [Suspect]
     Active Substance: ATORVASTATIN
     Dosage: UNK UNK,UNK,UNKNOWN
     Route: 065
  5. PRAVASTATIN. [Suspect]
     Active Substance: PRAVASTATIN
     Dosage: 20 MG,UNK,UNKNOWN
     Route: 065
     Dates: start: 2016
  6. ATORVASTATIN [Suspect]
     Active Substance: ATORVASTATIN
     Indication: PRODUCT USED FOR UNKNOWN INDICATION
     Dosage: 40 MG,UNK,UNKNOWN
     Route: 048
     Dates: start: 2013
  7. SIMVASTATIN. [Suspect]
     Active Substance: SIMVASTATIN
     Indication: ACUTE MYOCARDIAL INFARCTION
     Dosage: 40 MG,UNK,UNKNOWN
     Route: 065
     Dates: start: 2013
  8. SIMVASTATIN. [Suspect]
     Active Substance: SIMVASTATIN
     Dosage: UNK UNK,UNK,UNKNOWN
     Route: 065
  9. EZETROL [Suspect]
     Active Substance: EZETIMIBE
     Indication: ACUTE MYOCARDIAL INFARCTION
     Dosage: 10 MG,UNK,UNKNOWN
     Route: 065
     Dates: start: 2014, end: 2015
  10. EZETROL [Suspect]
     Active Substance: EZETIMIBE
     Dosage: 20 MG,UNK,UNKNOWN
     Route: 065
     Dates: start: 2015
  11. ATORVASTATIN [Suspect]
     Active Substance: ATORVASTATIN
     Dosage: 20 MG,UNK,UNKNOWN
     Route: 065
     Dates: start: 2014, end: 2015

REACTIONS (1)
  - Myalgia [Recovered/Resolved]

NARRATIVE: CASE EVENT DATE: 2013
